FAERS Safety Report 8822941 (Version 2)
Quarter: 2012Q4

REPORT INFORMATION
  Report Type: 
  Country: CA (occurrence: CA)
  Receive Date: 20121003
  Receipt Date: 20121008
  Transmission Date: 20130627
  Serious: Yes (Other)
  Sender: FDA-Public Use
  Company Number: PHHY2012CA085426

PATIENT
  Sex: Female

DRUGS (10)
  1. ACLASTA/ZOLEDRONATE [Suspect]
     Indication: OSTEOPOROSIS
     Dosage: 5 mg, UNK
     Route: 042
     Dates: start: 20090831
  2. ACLASTA/ZOLEDRONATE [Suspect]
     Dosage: 5 mg, UNK
     Route: 042
     Dates: end: 201109
  3. ATACAND [Concomitant]
     Dosage: 1 DF, QD
     Dates: start: 20090706
  4. APO-ZOPICLONE [Concomitant]
     Dosage: 1 DF, UNK
     Dates: start: 20080810
  5. ASA [Concomitant]
     Dosage: 1 DF, QD
     Dates: start: 20070416
  6. NEXIUM [Concomitant]
     Dosage: 1 DF, QD
     Dates: start: 20070326
  7. SYNTHROID [Concomitant]
     Dosage: 1 DF, QD
     Dates: start: 20070326
  8. NIFEDIPINE [Concomitant]
     Dosage: 1 DF, QD
  9. INFLUENZA VACCINE [Concomitant]
     Dosage: UNK UKN, UNK
     Dates: start: 20051101
  10. SWINE FLU VACCINE [Concomitant]
     Dosage: UNK UKN, UNK
     Dates: start: 20091218

REACTIONS (8)
  - Lenticular opacities [Unknown]
  - Visual impairment [Recovered/Resolved]
  - Visual acuity reduced [Unknown]
  - Vision blurred [Unknown]
  - Eyelid cyst [Unknown]
  - Photopsia [Unknown]
  - Photophobia [Unknown]
  - Headache [Recovered/Resolved]
